FAERS Safety Report 8670073 (Version 4)
Quarter: 2013Q2

REPORT INFORMATION
  Report Type: Report from Study
  Country: JP (occurrence: JP)
  Receive Date: 20120718
  Receipt Date: 20130416
  Transmission Date: 20140414
  Serious: Yes (Life-Threatening, Hospitalization, Other)
  Sender: FDA-Public Use
  Company Number: JP-009507513-1207JPN000106

PATIENT
  Age: 67 Year
  Sex: Male
  Weight: 70 kg

DRUGS (13)
  1. PEGINTRON [Suspect]
     Indication: CHRONIC HEPATITIS C
     Dosage: 1.5MCG/KG/WEEK
     Route: 058
     Dates: start: 20120221, end: 20120515
  2. REBETOL [Suspect]
     Indication: CHRONIC HEPATITIS C
     Dosage: 800 MG, QD
     Route: 048
     Dates: start: 20120221, end: 20120521
  3. TELAVIC [Suspect]
     Indication: CHRONIC HEPATITIS C
     Dosage: 2250 MG, QD
     Route: 048
     Dates: start: 20120221, end: 20120514
  4. ZYLORIC [Suspect]
     Indication: ADVERSE EVENT
     Dosage: 200 MG, QD
     Route: 048
     Dates: start: 20120223
  5. ZYLORIC [Suspect]
     Dosage: 100 MG, QD
     Route: 048
     Dates: start: 20120223
  6. URSO [Concomitant]
     Indication: CHRONIC HEPATITIS C
     Dosage: 600 MG, QD
     Route: 048
     Dates: end: 20120312
  7. ANTEBATE [Concomitant]
     Route: 061
     Dates: start: 20120410
  8. PROMAC (NITROFURANTOIN) [Concomitant]
     Dosage: 150 MG, QD
     Route: 048
     Dates: start: 20120417
  9. ALTAT [Concomitant]
     Dosage: 150 MG, QD
     Route: 048
     Dates: start: 20120417
  10. MARZULENE-S [Concomitant]
     Route: 048
     Dates: start: 20120417
  11. GASMOTIN [Concomitant]
     Dosage: 15 MG, QD
     Route: 048
     Dates: start: 20120417
  12. DERMOVATE [Concomitant]
     Route: 061
     Dates: start: 20120502
  13. RINDERON V [Concomitant]
     Route: 061
     Dates: start: 20120502

REACTIONS (6)
  - Drug eruption [Not Recovered/Not Resolved]
  - Drug eruption [Not Recovered/Not Resolved]
  - Drug eruption [Not Recovered/Not Resolved]
  - Sepsis [Recovered/Resolved]
  - Cytomegalovirus infection [Recovered/Resolved]
  - Infective spondylitis [Unknown]
